FAERS Safety Report 9154513 (Version 1)
Quarter: 2013Q1

REPORT INFORMATION
  Report Type: Spontaneous
  Country: US (occurrence: None)
  Receive Date: 20130306
  Receipt Date: 20130306
  Transmission Date: 20140127
  Serious: Yes (Other)
  Sender: FDA-Public Use
  Company Number: None

PATIENT
  Sex: Female
  Weight: 53.07 kg

DRUGS (1)
  1. RANEXA 500 MG GILEAD [Suspect]
     Indication: ANGINA PECTORIS
     Dosage: 500 MG BID - 2 X DAILY
     Dates: start: 20130213, end: 20130214

REACTIONS (2)
  - Dizziness [None]
  - Loss of consciousness [None]
